FAERS Safety Report 25810380 (Version 1)
Quarter: 2025Q3

REPORT INFORMATION
  Report Type: Spontaneous
  Country: JP (occurrence: JP)
  Receive Date: 20250917
  Receipt Date: 20250917
  Transmission Date: 20251021
  Serious: Yes (Hospitalization)
  Sender: GLAXOSMITHKLINE
  Company Number: JP-GSKNCCC-Case-02581694_AE-102957

PATIENT
  Age: 14 Year
  Sex: Male

DRUGS (3)
  1. SERETIDE [Suspect]
     Active Substance: FLUTICASONE PROPIONATE\SALMETEROL XINAFOATE
     Indication: Asthma
     Dosage: 100 ?G, BID
  2. MONTELUKAST SODIUM [Concomitant]
     Active Substance: MONTELUKAST SODIUM
     Indication: Asthma
  3. TULOBUTEROL [Concomitant]
     Active Substance: TULOBUTEROL
     Indication: Asthma

REACTIONS (2)
  - Asthma exercise induced [Recovered/Resolved]
  - Therapeutic product effect incomplete [Unknown]
